FAERS Safety Report 23182488 (Version 1)
Quarter: 2023Q4

REPORT INFORMATION
  Report Type: Report from Study
  Country: DE (occurrence: DE)
  Receive Date: 20231114
  Receipt Date: 20231114
  Transmission Date: 20240109
  Serious: Yes (Hospitalization)
  Sender: FDA-Public Use
  Company Number: DE-SA-SAC20231101000948

PATIENT
  Age: 69 Year
  Sex: Male

DRUGS (68)
  1. DEXAMETHASONE [Suspect]
     Active Substance: DEXAMETHASONE
     Indication: Plasma cell myeloma refractory
     Dosage: 20 MG
     Route: 065
     Dates: start: 20221107, end: 20221108
  2. DEXAMETHASONE [Suspect]
     Active Substance: DEXAMETHASONE
     Dosage: 20 MG
     Route: 065
     Dates: start: 20230802, end: 20230802
  3. DEXAMETHASONE [Suspect]
     Active Substance: DEXAMETHASONE
     Dosage: 20 MG
     Route: 065
     Dates: start: 20220912, end: 20220913
  4. DEXAMETHASONE [Suspect]
     Active Substance: DEXAMETHASONE
     Dosage: 20 MG
     Route: 065
     Dates: start: 20230531, end: 20230621
  5. DEXAMETHASONE [Suspect]
     Active Substance: DEXAMETHASONE
     Dosage: 20 MG
     Route: 065
     Dates: start: 20230815, end: 20230816
  6. DEXAMETHASONE [Suspect]
     Active Substance: DEXAMETHASONE
     Dosage: 20 MG
     Route: 065
     Dates: start: 20230131, end: 20230201
  7. DEXAMETHASONE [Suspect]
     Active Substance: DEXAMETHASONE
     Dosage: 20 MG
     Route: 065
     Dates: start: 20221024, end: 20221025
  8. DEXAMETHASONE [Suspect]
     Active Substance: DEXAMETHASONE
     Dosage: 20 MG
     Route: 065
     Dates: start: 20230117, end: 20230118
  9. DEXAMETHASONE [Suspect]
     Active Substance: DEXAMETHASONE
     Dosage: 20 MG
     Route: 065
     Dates: start: 20221121, end: 20221122
  10. DEXAMETHASONE [Suspect]
     Active Substance: DEXAMETHASONE
     Dosage: 20 MG
     Route: 065
     Dates: start: 20221205, end: 20221206
  11. DEXAMETHASONE [Suspect]
     Active Substance: DEXAMETHASONE
     Dosage: 20 MG
     Route: 065
     Dates: start: 20230228, end: 20230301
  12. DEXAMETHASONE [Suspect]
     Active Substance: DEXAMETHASONE
     Dosage: 20 MG
     Route: 065
     Dates: start: 20230404, end: 20230405
  13. DEXAMETHASONE [Suspect]
     Active Substance: DEXAMETHASONE
     Dosage: 20 MG
     Route: 065
     Dates: start: 20230516, end: 20230517
  14. DEXAMETHASONE [Suspect]
     Active Substance: DEXAMETHASONE
     Dosage: 20 MG
     Route: 065
     Dates: start: 20230418, end: 20230419
  15. DEXAMETHASONE [Suspect]
     Active Substance: DEXAMETHASONE
     Dosage: 20 MG
     Route: 065
     Dates: start: 20230704, end: 20230802
  16. DEXAMETHASONE [Suspect]
     Active Substance: DEXAMETHASONE
     Dosage: 20 MG (D1, D2, D8, D9, D15, D16, D22)
     Route: 065
     Dates: start: 20220815, end: 20220905
  17. DEXAMETHASONE [Suspect]
     Active Substance: DEXAMETHASONE
     Dosage: 20 MG (D1, D2)
     Route: 065
     Dates: start: 20221010, end: 20221011
  18. DEXAMETHASONE [Suspect]
     Active Substance: DEXAMETHASONE
     Dosage: 20 MG
     Route: 065
     Dates: start: 20220926, end: 20220927
  19. DEXAMETHASONE [Suspect]
     Active Substance: DEXAMETHASONE
     Dosage: 20 MG
     Route: 065
     Dates: start: 20230502, end: 20230503
  20. DEXAMETHASONE [Suspect]
     Active Substance: DEXAMETHASONE
     Dosage: 20 MG
     Route: 065
     Dates: start: 20230314, end: 20230315
  21. CARFILZOMIB [Suspect]
     Active Substance: CARFILZOMIB
     Indication: Plasma cell myeloma refractory
     Dosage: 111 MG
     Route: 065
     Dates: start: 20220926, end: 20220927
  22. CARFILZOMIB [Suspect]
     Active Substance: CARFILZOMIB
     Dosage: 111 MG
     Route: 065
     Dates: start: 20230418, end: 20230419
  23. CARFILZOMIB [Suspect]
     Active Substance: CARFILZOMIB
     Dosage: 111 MG
     Route: 065
     Dates: start: 20230704, end: 20230802
  24. CARFILZOMIB [Suspect]
     Active Substance: CARFILZOMIB
     Dosage: 111 MG
     Route: 065
     Dates: start: 20221024, end: 20221025
  25. CARFILZOMIB [Suspect]
     Active Substance: CARFILZOMIB
     Dosage: 111 MG
     Route: 065
     Dates: start: 20230314, end: 20230315
  26. CARFILZOMIB [Suspect]
     Active Substance: CARFILZOMIB
     Dosage: 111 MG
     Route: 065
     Dates: start: 20221010, end: 20221011
  27. CARFILZOMIB [Suspect]
     Active Substance: CARFILZOMIB
     Dosage: 111 MG
     Route: 065
     Dates: start: 20230117, end: 20230118
  28. CARFILZOMIB [Suspect]
     Active Substance: CARFILZOMIB
     Dosage: 111 MG
     Route: 065
     Dates: start: 20230404, end: 20230405
  29. CARFILZOMIB [Suspect]
     Active Substance: CARFILZOMIB
     Dosage: 111 MG
     Route: 065
     Dates: start: 20220912, end: 20220913
  30. CARFILZOMIB [Suspect]
     Active Substance: CARFILZOMIB
     Dosage: 111 MG
     Route: 065
     Dates: start: 20230802, end: 20230802
  31. CARFILZOMIB [Suspect]
     Active Substance: CARFILZOMIB
     Dosage: 111 MG
     Route: 065
     Dates: start: 20221121, end: 20221122
  32. CARFILZOMIB [Suspect]
     Active Substance: CARFILZOMIB
     Dosage: 111 MG
     Route: 065
     Dates: start: 20230815, end: 20230816
  33. CARFILZOMIB [Suspect]
     Active Substance: CARFILZOMIB
     Dosage: 111 MG
     Route: 065
     Dates: start: 20230131, end: 20230201
  34. CARFILZOMIB [Suspect]
     Active Substance: CARFILZOMIB
     Dosage: 111 MG
     Route: 065
     Dates: start: 20220822, end: 20220822
  35. CARFILZOMIB [Suspect]
     Active Substance: CARFILZOMIB
     Dosage: 111 MG
     Route: 065
     Dates: start: 20230214, end: 20230215
  36. CARFILZOMIB [Suspect]
     Active Substance: CARFILZOMIB
     Dosage: 111 MG
     Route: 065
     Dates: start: 20230502, end: 20230503
  37. CARFILZOMIB [Suspect]
     Active Substance: CARFILZOMIB
     Dosage: 111 MG
     Route: 065
     Dates: start: 20221205, end: 20221206
  38. CARFILZOMIB [Suspect]
     Active Substance: CARFILZOMIB
     Dosage: 40 MG
     Route: 065
     Dates: start: 20220816, end: 20220816
  39. CARFILZOMIB [Suspect]
     Active Substance: CARFILZOMIB
     Dosage: 111 MG
     Route: 065
     Dates: start: 20221205, end: 20221206
  40. CARFILZOMIB [Suspect]
     Active Substance: CARFILZOMIB
     Dosage: 111 MG
     Route: 065
     Dates: start: 20230516, end: 20230517
  41. CARFILZOMIB [Suspect]
     Active Substance: CARFILZOMIB
     Dosage: 111 MG
     Route: 065
     Dates: start: 20230228, end: 20230301
  42. CARFILZOMIB [Suspect]
     Active Substance: CARFILZOMIB
     Dosage: 111 MG
     Route: 065
     Dates: start: 20230531, end: 20230621
  43. CARFILZOMIB [Suspect]
     Active Substance: CARFILZOMIB
     Dosage: 111 MG
     Route: 065
     Dates: start: 20221107, end: 20221108
  44. ISATUXIMAB [Suspect]
     Active Substance: ISATUXIMAB
     Indication: Plasma cell myeloma refractory
     Dosage: 760 MG, BIW
     Route: 065
     Dates: start: 20230117, end: 20230117
  45. ISATUXIMAB [Suspect]
     Active Substance: ISATUXIMAB
     Dosage: 760 MG
     Route: 065
     Dates: start: 20221010, end: 20221010
  46. ISATUXIMAB [Suspect]
     Active Substance: ISATUXIMAB
     Dosage: 760 MG
     Route: 065
     Dates: start: 20230815, end: 20230815
  47. ISATUXIMAB [Suspect]
     Active Substance: ISATUXIMAB
     Dosage: 760 MG, 1X
     Route: 065
     Dates: start: 20230102, end: 20230102
  48. ISATUXIMAB [Suspect]
     Active Substance: ISATUXIMAB
     Dosage: 760 MG, 1X
     Route: 065
     Dates: start: 20221121, end: 20221121
  49. ISATUXIMAB [Suspect]
     Active Substance: ISATUXIMAB
     Dosage: 760 MG, BIW
     Route: 065
     Dates: start: 20230214, end: 20230215
  50. ISATUXIMAB [Suspect]
     Active Substance: ISATUXIMAB
     Dosage: 760 MG, BIW
     Route: 065
     Dates: start: 20230704, end: 20230801
  51. ISATUXIMAB [Suspect]
     Active Substance: ISATUXIMAB
     Dosage: 760 MG, BIW
     Route: 065
     Dates: start: 20230502, end: 20230503
  52. ISATUXIMAB [Suspect]
     Active Substance: ISATUXIMAB
     Dosage: 760 MG, BIW
     Route: 065
     Dates: start: 20230516, end: 20230620
  53. ISATUXIMAB [Suspect]
     Active Substance: ISATUXIMAB
     Dosage: 760 MG (D1, D8, D15, D22)
     Route: 065
     Dates: start: 20220815, end: 20220905
  54. ISATUXIMAB [Suspect]
     Active Substance: ISATUXIMAB
     Dosage: 760 MG, BIW
     Route: 065
     Dates: start: 20230404, end: 20230405
  55. ISATUXIMAB [Suspect]
     Active Substance: ISATUXIMAB
     Dosage: 760 MG, BIW
     Route: 065
     Dates: start: 20220912, end: 20220926
  56. ISATUXIMAB [Suspect]
     Active Substance: ISATUXIMAB
     Dosage: 760 MG, BIW
     Route: 065
     Dates: start: 20230228, end: 20230301
  57. COTRIM [Concomitant]
     Active Substance: SULFAMETHOXAZOLE\TRIMETHOPRIM
     Indication: Aortic aneurysm
     Dosage: UNK
     Dates: start: 20201123
  58. PANTOPRAZOLE [Concomitant]
     Active Substance: PANTOPRAZOLE
     Indication: Gastritis prophylaxis
     Dosage: UNK
     Dates: start: 20230215
  59. IBANDRONIC ACID [Concomitant]
     Active Substance: IBANDRONIC ACID
     Indication: Prophylaxis
     Dosage: UNK
     Dates: start: 20170630
  60. METFORMIN [Concomitant]
     Active Substance: METFORMIN HYDROCHLORIDE
     Indication: Diabetes mellitus
     Dosage: UNK
     Dates: start: 2015
  61. PLATELETS [Concomitant]
     Active Substance: HUMAN PLATELET, ALLOGENIC
     Indication: Product used for unknown indication
     Dosage: UNK
     Route: 065
     Dates: start: 20220919
  62. ACETAMINOPHEN [Concomitant]
     Active Substance: ACETAMINOPHEN
     Indication: Allergy prophylaxis
     Dosage: UNK UNK, QCY
     Route: 065
     Dates: start: 20220815
  63. HUMAN RED BLOOD CELL [Concomitant]
     Active Substance: HUMAN RED BLOOD CELL
     Indication: Product used for unknown indication
     Dosage: UNK
     Dates: start: 20221006
  64. OMEPRAZOLE [Concomitant]
     Active Substance: OMEPRAZOLE
     Indication: Product used for unknown indication
     Dosage: UNK
     Dates: start: 20230103
  65. BEZAFIBRATE [Concomitant]
     Active Substance: BEZAFIBRATE
     Indication: Hyperlipidaemia
     Dosage: UNK
     Dates: start: 201611
  66. CLEMASTINE [Concomitant]
     Active Substance: CLEMASTINE
     Indication: Allergy prophylaxis
     Dosage: UNK UNK, QCY
     Dates: start: 20220815
  67. LOPERAMIDE [Concomitant]
     Active Substance: LOPERAMIDE
     Indication: Product used for unknown indication
     Dosage: UNK
     Dates: start: 20221226, end: 20230102
  68. ACYCLOVIR [Concomitant]
     Active Substance: ACYCLOVIR
     Indication: Infection prophylaxis
     Dosage: UNK
     Dates: start: 20201123

REACTIONS (1)
  - Hospitalisation [Unknown]

NARRATIVE: CASE EVENT DATE: 20231027
